FAERS Safety Report 19658521 (Version 1)
Quarter: 2021Q3

REPORT INFORMATION
  Report Type: Report from Study
  Country: CR (occurrence: CR)
  Receive Date: 20210804
  Receipt Date: 20210804
  Transmission Date: 20211014
  Serious: Yes (Death, Hospitalization)
  Sender: FDA-Public Use
  Company Number: CR-ASTRAZENECA-2021A609058

PATIENT
  Age: 30422 Day
  Sex: Female
  Weight: 38 kg

DRUGS (3)
  1. TAGRISSO [Suspect]
     Active Substance: OSIMERTINIB
     Indication: LUNG NEOPLASM MALIGNANT
     Route: 048
     Dates: start: 20210710
  2. ANTICOAGULANT MEDICINE [Concomitant]
  3. TAGRISSO [Suspect]
     Active Substance: OSIMERTINIB
     Indication: LUNG NEOPLASM MALIGNANT
     Route: 048
     Dates: start: 20210626, end: 20210707

REACTIONS (3)
  - Rash [Not Recovered/Not Resolved]
  - Skin discolouration [Unknown]
  - Death [Fatal]

NARRATIVE: CASE EVENT DATE: 20210705
